FAERS Safety Report 7969210-0 (Version None)
Quarter: 2011Q4

REPORT INFORMATION
  Report Type: 
  Country: None (occurrence: None)
  Receive Date: 20111209
  Receipt Date: 20111205
  Transmission Date: 20120403
  Serious: Yes (Death, Life-Threatening, Hospitalization, Other)
  Sender: FDA-Public Use
  Company Number: US-ELI_LILLY_AND_COMPANY-US201112001352

PATIENT
  Sex: Male

DRUGS (9)
  1. PRANDIN [Concomitant]
     Indication: TYPE 2 DIABETES MELLITUS
  2. LANTUS [Concomitant]
     Indication: TYPE 2 DIABETES MELLITUS
  3. ULORIC [Concomitant]
     Indication: GOUT
  4. ZETIA [Concomitant]
     Indication: HYPERCHOLESTEROLAEMIA
  5. LOVAZA [Concomitant]
  6. BYETTA [Suspect]
     Indication: TYPE 2 DIABETES MELLITUS
     Dosage: 5 UG, BID
     Route: 058
  7. VERAPAMIL [Concomitant]
     Indication: HYPERTENSION
  8. BYETTA [Suspect]
     Dosage: 10 UG, BID
     Route: 058
  9. ASPIRIN [Concomitant]
     Dosage: 325 MG, UNKNOWN
     Route: 048

REACTIONS (12)
  - ACUTE RESPIRATORY DISTRESS SYNDROME [None]
  - COMA [None]
  - PANCREATITIS NECROTISING [None]
  - SEPSIS [None]
  - RENAL FAILURE [None]
  - DIALYSIS [None]
  - COLOSTOMY [None]
  - MULTI-ORGAN FAILURE [None]
  - GASTROINTESTINAL HAEMORRHAGE [None]
  - OFF LABEL USE [None]
  - CHOLELITHIASIS [None]
  - DEATH [None]
